FAERS Safety Report 17390306 (Version 2)
Quarter: 2020Q1

REPORT INFORMATION
  Report Type: Spontaneous
  Country: NL (occurrence: FR)
  Receive Date: 20200207
  Receipt Date: 20200317
  Transmission Date: 20200409
  Serious: Yes (Death)
  Sender: FDA-Public Use
  Company Number: FR-FRESENIUS KABI-FK202001158

PATIENT
  Sex: Female

DRUGS (13)
  1. MAGNESIUM CHLORIDE. [Suspect]
     Active Substance: MAGNESIUM CHLORIDE
     Indication: PRODUCT USED FOR UNKNOWN INDICATION
     Dosage: MGCL2 10% 500 ML?7 BAGS PER WEEK
     Route: 051
     Dates: start: 201906
  2. SODIUM CHLORIDE (MANUFACTURER UNKNOWN) [Suspect]
     Active Substance: SODIUM CHLORIDE
     Indication: PRODUCT USED FOR UNKNOWN INDICATION
     Dosage: 500 ML?7 BAGS PER WEEK
     Route: 051
     Dates: start: 201906
  3. GLUCOSE 1-PHOSPHATE DISODIUM [Suspect]
     Active Substance: .ALPHA.-GLUCOSE-1-PHOSPHATE
     Indication: PRODUCT USED FOR UNKNOWN INDICATION
     Dosage: 7 BAGS PER WEEK
     Route: 051
     Dates: start: 201906
  4. GLUCOSE/CALCIUM [Suspect]
     Active Substance: CALCIUM\DEXTROSE
     Indication: PRODUCT USED FOR UNKNOWN INDICATION
     Dosage: GLUCO CA 500 ML?7 BAGS PER WEEK
     Route: 051
  5. SELENIUM [Suspect]
     Active Substance: SELENIUM
     Indication: PRODUCT USED FOR UNKNOWN INDICATION
     Dosage: 7 BAGS PER WEEK
     Route: 051
     Dates: start: 201906
  6. ASCORBIC ACID/PYRIDOXINE HYDROCHLORIDE/BIOTIN/FOLIC ACID/COLECALCIFEROL/CYANOCOBALAMIN/RETINOL PALMI [Suspect]
     Active Substance: VITAMINS
     Indication: PRODUCT USED FOR UNKNOWN INDICATION
     Dosage: 7 BAGS PER WEEK
     Route: 051
     Dates: start: 201906
  7. SMOFLIPID [Suspect]
     Active Substance: FISH OIL\MEDIUM-CHAIN TRIGLYCERIDES\OLIVE OIL\SOYBEAN OIL
     Indication: PRODUCT USED FOR UNKNOWN INDICATION
     Dosage: 7 BAGS PER WEEK
     Route: 051
     Dates: start: 201906
  8. TOCOPHERYL ACETATE [Suspect]
     Active Substance: .ALPHA.-TOCOPHEROL ACETATE
     Indication: PRODUCT USED FOR UNKNOWN INDICATION
     Dosage: 7 BAGS PER WEEK
     Route: 051
     Dates: start: 201906
  9. LEVOCARNITINE. [Suspect]
     Active Substance: LEVOCARNITINE
     Indication: PRODUCT USED FOR UNKNOWN INDICATION
     Dosage: 7 BAGS PER WEEK
     Route: 051
     Dates: start: 201906
  10. AMINO ACIDS NOS [Suspect]
     Active Substance: AMINO ACIDS, SOURCE UNSPECIFIED
     Indication: PRODUCT USED FOR UNKNOWN INDICATION
     Dosage: 7 BAGS PER WEEK
     Route: 051
     Dates: start: 201906
  11. GLUCOSE (MANUFACTURER UNKNOWN) [Suspect]
     Active Substance: DEXTROSE
     Indication: PRODUCT USED FOR UNKNOWN INDICATION
     Dosage: 7 BAGS PER WEEK
     Route: 051
     Dates: start: 201906
  12. ZINC. [Suspect]
     Active Substance: ZINC
     Indication: PRODUCT USED FOR UNKNOWN INDICATION
     Dosage: 7 BAGS PER WEEK
     Route: 051
     Dates: start: 201906
  13. POTASSIUM CHLORIDE (MANUFACTURER UNKNOWN) [Suspect]
     Active Substance: POTASSIUM CHLORIDE
     Indication: PRODUCT USED FOR UNKNOWN INDICATION
     Dosage: POTASSIUM CHLORIDE 10% 500 ML?7 BAGS PER WEEK
     Route: 051
     Dates: start: 201906

REACTIONS (2)
  - Infection [Unknown]
  - Death [Fatal]

NARRATIVE: CASE EVENT DATE: 20200118
